FAERS Safety Report 23026204 (Version 1)
Quarter: 2023Q4

REPORT INFORMATION
  Report Type: Spontaneous
  Country: NO (occurrence: NO)
  Receive Date: 20231004
  Receipt Date: 20231004
  Transmission Date: 20240110
  Serious: Yes (Life-Threatening, Hospitalization, Disabling)
  Sender: FDA-Public Use
  Company Number: None

PATIENT
  Age: 85 Year
  Sex: Male

DRUGS (4)
  1. ELIQUIS [Interacting]
     Active Substance: APIXABAN
     Indication: Atrial fibrillation
     Dosage: FREQUENCY TIME: 12 HOUR
     Route: 048
     Dates: start: 2020
  2. ASPIRIN\MAGNESIUM OXIDE [Interacting]
     Active Substance: ASPIRIN\MAGNESIUM OXIDE
     Indication: Atrial fibrillation
     Dosage: FREQUENCY TIME: 1 DAY
     Route: 048
     Dates: start: 20230824
  3. TAMBOCOR [Concomitant]
     Active Substance: FLECAINIDE ACETATE
     Indication: Arrhythmia
     Dates: end: 2002
  4. EXELON [Concomitant]
     Active Substance: RIVASTIGMINE TARTRATE
     Indication: Memory impairment

REACTIONS (2)
  - Spinal epidural haematoma [Recovering/Resolving]
  - Drug interaction [Unknown]

NARRATIVE: CASE EVENT DATE: 20230920
